FAERS Safety Report 7384983-6 (Version None)
Quarter: 2011Q1

REPORT INFORMATION
  Report Type: 
  Country: None (occurrence: None)
  Receive Date: 20110323
  Receipt Date: 20110308
  Transmission Date: 20110831
  Serious: Yes (Hospitalization)
  Sender: FDA-Public Use
  Company Number: JPI-P-012955

PATIENT
  Age: 36 Year
  Sex: Female
  Weight: 74.8435 kg

DRUGS (8)
  1. DULOXETINE HYDROCHLORIDE [Concomitant]
  2. ZOLPIDERM TARTRATE [Concomitant]
  3. XYREM [Suspect]
     Indication: NARCOLEPSY
     Dosage: 6 GM (3 GM,2 IN 1 D), ORAL; 6 GM (3 GM,2 IN 1 D), ORAL; 7.5 GM (3.75 GM,2 IN 1 D), ORAL; 7.5 GM (3.7
     Route: 048
     Dates: start: 20090801
  4. XYREM [Suspect]
     Indication: NARCOLEPSY
     Dosage: 6 GM (3 GM,2 IN 1 D), ORAL; 6 GM (3 GM,2 IN 1 D), ORAL; 7.5 GM (3.75 GM,2 IN 1 D), ORAL; 7.5 GM (3.7
     Route: 048
     Dates: start: 20101219
  5. XYREM [Suspect]
     Indication: NARCOLEPSY
     Dosage: 6 GM (3 GM,2 IN 1 D), ORAL; 6 GM (3 GM,2 IN 1 D), ORAL; 7.5 GM (3.75 GM,2 IN 1 D), ORAL; 7.5 GM (3.7
     Route: 048
     Dates: end: 20101216
  6. XYREM [Suspect]
     Indication: NARCOLEPSY
     Dosage: 6 GM (3 GM,2 IN 1 D), ORAL; 6 GM (3 GM,2 IN 1 D), ORAL; 7.5 GM (3.75 GM,2 IN 1 D), ORAL; 7.5 GM (3.7
     Route: 048
     Dates: start: 20090804, end: 20090807
  7. OXYCODONE [Concomitant]
  8. DEXTROMPHETAMINE AND AMPHETAMINE [Concomitant]

REACTIONS (10)
  - ABNORMAL DREAMS [None]
  - RECTAL PROLAPSE [None]
  - ENDOMETRIOSIS [None]
  - DIARRHOEA [None]
  - UTERINE PROLAPSE [None]
  - INITIAL INSOMNIA [None]
  - BLADDER PROLAPSE [None]
  - VAGINAL PROLAPSE [None]
  - HANGOVER [None]
  - CONDITION AGGRAVATED [None]
